FAERS Safety Report 21542634 (Version 2)
Quarter: 2022Q4

REPORT INFORMATION
  Report Type: Spontaneous
  Country: US (occurrence: US)
  Receive Date: 20221102
  Receipt Date: 20221104
  Transmission Date: 20230113
  Serious: No
  Sender: FDA-Public Use
  Company Number: US-PFIZER INC-PV202200094148

PATIENT
  Age: 83 Year
  Sex: Female

DRUGS (3)
  1. VORICONAZOLE [Suspect]
     Active Substance: VORICONAZOLE
     Dosage: 200 MG, 2X/DAY
  2. VORICONAZOLE [Suspect]
     Active Substance: VORICONAZOLE
     Dosage: TAKE 0.5 TABLETS (100MG) BY MOUTH 2 TIMES DAILY
     Route: 048
  3. VFEND [Suspect]
     Active Substance: VORICONAZOLE
     Dosage: 100 MG, 2X/DAY
     Route: 048

REACTIONS (5)
  - Fatigue [Unknown]
  - Insomnia [Unknown]
  - Rash [Unknown]
  - Diplopia [Unknown]
  - Vision blurred [Unknown]
